FAERS Safety Report 19620712 (Version 1)
Quarter: 2021Q3

REPORT INFORMATION
  Report Type: Spontaneous
  Country: US (occurrence: US)
  Receive Date: 20210728
  Receipt Date: 20210728
  Transmission Date: 20211014
  Serious: Yes (Hospitalization, Other)
  Sender: FDA-Public Use
  Company Number: US-ADAREPHARM-2020-US-000099

PATIENT
  Age: 64 Year
  Sex: Male

DRUGS (1)
  1. PROPRANOLOL [Suspect]
     Active Substance: PROPRANOLOL HYDROCHLORIDE
     Indication: GASTROOESOPHAGEAL VARICEAL HAEMORRHAGE PROPHYLAXIS

REACTIONS (3)
  - Encapsulating peritoneal sclerosis [Recovered/Resolved]
  - Product use in unapproved indication [Unknown]
  - Small intestinal obstruction [Recovered/Resolved]
